FAERS Safety Report 11584253 (Version 1)
Quarter: 2015Q4

REPORT INFORMATION
  Report Type: Spontaneous
  Country: US (occurrence: US)
  Receive Date: 20151001
  Receipt Date: 20151001
  Transmission Date: 20160304
  Serious: No
  Sender: FDA-Public Use
  Company Number: US-BAUSCH-BL-2015-015982

PATIENT
  Age: 71 Year
  Sex: Female
  Weight: 54.48 kg

DRUGS (3)
  1. VITAMIN D [Concomitant]
     Active Substance: CHOLECALCIFEROL
     Indication: SUPPLEMENTATION THERAPY
     Route: 048
  2. VITAMINS [Concomitant]
     Active Substance: VITAMINS
     Indication: SUPPLEMENTATION THERAPY
     Route: 048
  3. JUBLIA [Suspect]
     Active Substance: EFINACONAZOLE
     Indication: FUNGAL INFECTION
     Route: 061
     Dates: start: 201501

REACTIONS (4)
  - Ingrowing nail [Not Recovered/Not Resolved]
  - Erythema [Not Recovered/Not Resolved]
  - Swelling [Not Recovered/Not Resolved]
  - Condition aggravated [Not Recovered/Not Resolved]

NARRATIVE: CASE EVENT DATE: 201504
